FAERS Safety Report 7515065-8 (Version None)
Quarter: 2011Q2

REPORT INFORMATION
  Report Type: 
  Country: None (occurrence: None)
  Receive Date: 20110601
  Receipt Date: 20110520
  Transmission Date: 20111010
  Serious: Yes (Hospitalization)
  Sender: FDA-Public Use
  Company Number: US-ASTELLAS-2011US001443

PATIENT

DRUGS (32)
  1. PROGRAF [Suspect]
     Dosage: 4 MG, BID
     Route: 065
  2. MAGNESIUM OXIDE [Concomitant]
     Indication: GASTRIC DISORDER
     Dosage: 400 MG, UID/QD
     Route: 065
  3. MULTI-VITAMIN [Concomitant]
     Indication: VITAMIN SUPPLEMENTATION
     Dosage: 1 DF, UID/QD
     Route: 066
  4. PROGRAF [Suspect]
     Indication: LIVER TRANSPLANT
     Dosage: 7 MG, UID/QD
     Route: 048
     Dates: start: 20010604
  5. CLARINET [Concomitant]
     Indication: ASTHMA
     Dosage: 5 MG, UID/QD
     Route: 065
  6. COMBIVENT [Concomitant]
     Indication: ASTHMA
     Dosage: 1 DF, QID
     Route: 065
  7. PRILOSEC [Concomitant]
     Indication: GASTROOESOPHAGEAL REFLUX DISEASE
     Dosage: 80 MG, UID/QD
     Route: 065
  8. LACTULOSE [Concomitant]
     Indication: CONSTIPATION PROPHYLAXIS
     Dosage: UNK
     Route: 065
  9. LOSARTAN POTASSIUM [Concomitant]
     Indication: BLOOD PRESSURE
     Dosage: 100 MG, UID/QD
     Route: 065
  10. SINGULAIR [Concomitant]
     Indication: ASTHMA
     Dosage: 10 MG, UID/QD
     Route: 065
  11. SLOW FE [Concomitant]
     Indication: MINERAL SUPPLEMENTATION
     Dosage: 1 DF, UID/QD
     Route: 065
  12. PLAQUENIL [Concomitant]
     Indication: RHEUMATOID ARTHRITIS
     Dosage: 200 MG, BID
     Route: 065
  13. CALCIUM WITH VITAMIN D [Concomitant]
     Indication: BONE DISORDER
     Dosage: 600 MG, BID
     Route: 065
  14. SPIRIVA [Concomitant]
     Dosage: 18 UG, UID/QD
     Route: 065
  15. NORTRIPTYLINE HYDROCHLORIDE [Concomitant]
     Indication: MIGRAINE
     Dosage: 150 MG, UID/QD
     Route: 065
  16. ADVAIR DISKUS 100/50 [Concomitant]
     Indication: ASTHMA
     Dosage: 250 MG, BID
     Route: 065
  17. VITAMIN D [Concomitant]
     Indication: VITAMIN SUPPLEMENTATION
     Dosage: 1000 MG, UID/QD
     Route: 065
  18. EPIVIR [Concomitant]
     Indication: HEPATITIS B
     Dosage: 100 MG, UID/QD
     Route: 065
  19. ASPIRIN [Concomitant]
     Indication: ANTICOAGULANT THERAPY
     Dosage: 81 MG, UID/QD
     Route: 065
  20. SPIRIVA [Concomitant]
     Indication: ASTHMA
     Dosage: 18 MG, UID/QD
     Route: 065
  21. LIDOSTEM [Concomitant]
     Indication: PAIN
     Dosage: 5 MG, PRN
     Route: 065
  22. OMEPRAZOLE [Concomitant]
     Indication: PRODUCT USED FOR UNKNOWN INDICATION
     Dosage: 20 MG, BID
     Route: 065
  23. BACTRIM [Concomitant]
     Indication: LIVER TRANSPLANT
     Dosage: 500 MG, QOD
     Route: 065
  24. DAILY DIGESTIVE [Concomitant]
     Indication: ENZYME SUPPLEMENTATION
     Dosage: UNK
     Route: 065
  25. BUTALBITAL CODEINE [Concomitant]
     Indication: MIGRAINE
     Dosage: 50/325 MG, PRN
     Route: 065
  26. BUTALBITAL CAFFEINE [Concomitant]
     Indication: MIGRAINE
     Dosage: 50/325 MG, PRN
     Route: 065
  27. TEMAZEPAM [Concomitant]
     Indication: SLEEP DISORDER
     Dosage: .5 MG, PRN
     Route: 065
  28. LAMIVUDINE [Concomitant]
     Indication: PRODUCT USED FOR UNKNOWN INDICATION
     Dosage: 100 MG, UID/QD
     Route: 065
  29. LIDODERM [Concomitant]
     Indication: PRODUCT USED FOR UNKNOWN INDICATION
     Dosage: UNK
     Route: 065
  30. ASPIRIN [Concomitant]
     Dosage: 325 MG, UID/QD
     Route: 065
  31. CLARINEX [Concomitant]
     Indication: PRODUCT USED FOR UNKNOWN INDICATION
     Dosage: 5 MG, UID/QD
     Route: 065
  32. ASPIRIN, BUTALBITAL, CODEINE [Concomitant]
     Indication: HEADACHE
     Dosage: UNK
     Route: 065

REACTIONS (1)
  - PNEUMATOSIS INTESTINALIS [None]
